FAERS Safety Report 23220041 (Version 2)
Quarter: 2023Q4

REPORT INFORMATION
  Report Type: Spontaneous
  Country: FR (occurrence: FR)
  Receive Date: 20231122
  Receipt Date: 20231205
  Transmission Date: 20240110
  Serious: Yes (Other)
  Sender: FDA-Public Use
  Company Number: FR-ALXN-A202303585

PATIENT
  Sex: Female

DRUGS (3)
  1. KANUMA [Suspect]
     Active Substance: SEBELIPASE ALFA
     Indication: Product used for unknown indication
     Dosage: 5 MG/KG, QW
     Route: 065
     Dates: start: 2016
  2. KANUMA [Suspect]
     Active Substance: SEBELIPASE ALFA
     Dosage: UNK UNK, Q2W
     Route: 065
  3. KANUMA [Suspect]
     Active Substance: SEBELIPASE ALFA
     Dosage: 5 MG/KG, QW
     Route: 065

REACTIONS (4)
  - Combined immunodeficiency [Unknown]
  - Nutritional condition abnormal [Unknown]
  - Gastrointestinal disorder [Unknown]
  - Off label use [Unknown]
